FAERS Safety Report 9411239 (Version 3)
Quarter: 2014Q1

REPORT INFORMATION
  Report Type: Spontaneous
  Country: FR (occurrence: FR)
  Receive Date: 20130722
  Receipt Date: 20140219
  Transmission Date: 20141002
  Serious: Yes (Other)
  Sender: FDA-Public Use
  Company Number: FR-AMGEN-FRASP2013050194

PATIENT
  Age: 50 Year
  Sex: Male

DRUGS (4)
  1. XGEVA [Suspect]
     Indication: PROSTATE CANCER
     Dosage: 120 UNK, QMO
     Route: 058
     Dates: start: 201302, end: 201305
  2. SKENAN [Concomitant]
     Indication: PAIN
     Dosage: 30 UNK, BID
     Route: 048
     Dates: start: 201212
  3. CASODEX [Concomitant]
     Indication: PROSTATE CANCER
     Dosage: 100 UNK, QD
     Route: 048
     Dates: start: 201212
  4. ZOLADEX                            /00732101/ [Concomitant]
     Indication: PROSTATE CANCER
     Dosage: 10.8 UNK, Q3MO
     Route: 058
     Dates: start: 201212

REACTIONS (1)
  - Osteonecrosis of jaw [Not Recovered/Not Resolved]
